FAERS Safety Report 19101839 (Version 1)
Quarter: 2021Q2

REPORT INFORMATION
  Report Type: Spontaneous
  Country: US (occurrence: US)
  Receive Date: 20210407
  Receipt Date: 20210407
  Transmission Date: 20210717
  Serious: Yes (Other)
  Sender: FDA-Public Use
  Company Number: None

PATIENT
  Age: 39 Year
  Sex: Female
  Weight: 63 kg

DRUGS (3)
  1. MIRENA [Concomitant]
     Active Substance: LEVONORGESTREL
  2. RECHARGE PROTECT BLUR [Suspect]
     Active Substance: TITANIUM DIOXIDE\ZINC OXIDE
     Indication: PROPHYLAXIS AGAINST SOLAR RADIATION
     Route: 061
     Dates: start: 20200601, end: 20210314
  3. RADIANT DEFENSE PERFECTING LIQUID BROAD SPECTRUM SPF 30 ? BEIGE [Suspect]
     Active Substance: TITANIUM DIOXIDE\ZINC OXIDE
     Indication: PROPHYLAXIS AGAINST SOLAR RADIATION
     Route: 061

REACTIONS (7)
  - Application site pain [None]
  - Application site erythema [None]
  - Application site swelling [None]
  - Application site pruritus [None]
  - Application site rash [None]
  - Feeling hot [None]
  - Dermatitis contact [None]

NARRATIVE: CASE EVENT DATE: 20210407
